FAERS Safety Report 8820370 (Version 1)
Quarter: 2012Q4

REPORT INFORMATION
  Report Type: 
  Country: US (occurrence: US)
  Receive Date: 20121002
  Receipt Date: 20121002
  Transmission Date: 20130627
  Serious: No
  Sender: FDA-Public Use
  Company Number: PHEH2012US019088

PATIENT
  Sex: Male

DRUGS (9)
  1. TASIGNA [Suspect]
     Indication: CHRONIC MYELOID LEUKAEMIA
     Dosage: 300 mg, BID
     Route: 048
     Dates: start: 20111201
  2. TASIGNA [Suspect]
     Dosage: 150 mg, BID
     Route: 048
     Dates: end: 201209
  3. THYROXINE [Concomitant]
  4. LOVASTATIN [Concomitant]
  5. LISINOPRIL [Concomitant]
  6. WARFARIN [Concomitant]
  7. LASIX [Concomitant]
  8. COREG [Concomitant]
  9. ASA [Concomitant]

REACTIONS (2)
  - Lacrimation increased [Recovering/Resolving]
  - Rhinorrhoea [Recovering/Resolving]
